FAERS Safety Report 7921341-7 (Version None)
Quarter: 2011Q4

REPORT INFORMATION
  Report Type: 
  Country: None (occurrence: None)
  Receive Date: 20111117
  Receipt Date: 20111111
  Transmission Date: 20120403
  Serious: Yes (Other)
  Sender: FDA-Public Use
  Company Number: AU-JNJFOC-20110100894

PATIENT
  Sex: Male

DRUGS (6)
  1. STELARA [Suspect]
     Route: 058
     Dates: start: 20100406
  2. STELARA [Suspect]
     Route: 058
     Dates: start: 20110401
  3. HUMALOG [Concomitant]
     Indication: DIABETES MELLITUS
  4. STELARA [Suspect]
     Route: 058
     Dates: start: 20110106
  5. NOVORAPID [Concomitant]
     Indication: DIABETES MELLITUS
  6. STELARA [Suspect]
     Indication: PSORIASIS
     Route: 058
     Dates: start: 20101015

REACTIONS (2)
  - PERTUSSIS [None]
  - PSORIASIS [None]
